FAERS Safety Report 9494686 (Version 1)
Quarter: 2013Q3

REPORT INFORMATION
  Report Type: Spontaneous
  Country: GB (occurrence: GB)
  Receive Date: 20130903
  Receipt Date: 20130903
  Transmission Date: 20140515
  Serious: Yes (Hospitalization)
  Sender: FDA-Public Use
  Company Number: GB-JNJFOC-20130817308

PATIENT
  Age: 66 Year
  Sex: Male

DRUGS (12)
  1. TAPENTADOL HYDROCHLORIDE [Suspect]
     Indication: BACK PAIN
     Route: 048
     Dates: start: 20130710, end: 20130711
  2. TAPENTADOL HYDROCHLORIDE [Suspect]
     Indication: BACK PAIN
     Route: 048
     Dates: start: 20130707, end: 20130710
  3. FENTANYL [Concomitant]
     Indication: BACK PAIN
     Route: 003
     Dates: start: 20120719, end: 20130709
  4. IBUPROFEN [Concomitant]
     Indication: BACK PAIN
     Route: 061
  5. PARACETAMOL [Concomitant]
     Indication: BACK PAIN
     Route: 065
     Dates: start: 20130314
  6. CALCICHEW D3 [Concomitant]
     Indication: PRODUCT USED FOR UNKNOWN INDICATION
     Route: 065
     Dates: start: 20030820
  7. FLUOXETINE [Concomitant]
     Indication: DEPRESSION
     Route: 065
     Dates: start: 20130425
  8. ALENDRONIC ACID [Concomitant]
     Indication: PRODUCT USED FOR UNKNOWN INDICATION
     Route: 065
     Dates: start: 20110518
  9. CLOBETASOL [Concomitant]
     Indication: PRODUCT USED FOR UNKNOWN INDICATION
     Route: 065
     Dates: start: 20070517
  10. ATORVASTATIN [Concomitant]
     Indication: MYOCARDIAL ISCHAEMIA
     Route: 065
     Dates: start: 20000309
  11. RAMIPRIL [Concomitant]
     Indication: MYOCARDIAL ISCHAEMIA
     Route: 065
     Dates: start: 20010705
  12. PREDNISOLONE [Concomitant]
     Indication: CUTANEOUS LUPUS ERYTHEMATOSUS
     Route: 065
     Dates: start: 19980719

REACTIONS (5)
  - Chest pain [Recovered/Resolved]
  - Abdominal pain [Recovered/Resolved]
  - Fatigue [Recovered/Resolved]
  - Hyperhidrosis [Recovered/Resolved]
  - Electrocardiogram ST segment abnormal [Recovered/Resolved]
